FAERS Safety Report 11755543 (Version 1)
Quarter: 2015Q4

REPORT INFORMATION
  Report Type: Spontaneous
  Country: US (occurrence: US)
  Receive Date: 20151119
  Receipt Date: 20151119
  Transmission Date: 20160304
  Serious: No
  Sender: FDA-Public Use
  Company Number: US-PFIZER INC-2015390101

PATIENT
  Age: 25 Year
  Sex: Male
  Weight: 68.4 kg

DRUGS (1)
  1. NICOTROL [Suspect]
     Active Substance: NICOTINE
     Indication: SMOKING CESSATION THERAPY
     Dosage: 2 SPRAYS OR 1 MG EVERY 3 OR 4 HOURS
     Route: 045
     Dates: start: 20150824

REACTIONS (1)
  - Vomiting [Unknown]
